FAERS Safety Report 6604432-2 (Version None)
Quarter: 2010Q1

REPORT INFORMATION
  Report Type: 
  Country: None (occurrence: None)
  Receive Date: 20100226
  Receipt Date: 20091002
  Transmission Date: 20100710
  Serious: No
  Sender: FDA-Public Use
  Company Number: A0810655A

PATIENT

DRUGS (2)
  1. LAMICTAL CD [Suspect]
     Indication: BIPOLAR DISORDER
  2. WELLBUTRIN [Suspect]
     Indication: BIPOLAR DISORDER

REACTIONS (2)
  - FEELING ABNORMAL [None]
  - HYPERSENSITIVITY [None]
